FAERS Safety Report 25233280 (Version 1)
Quarter: 2025Q2

REPORT INFORMATION
  Report Type: Spontaneous
  Country: US (occurrence: US)
  Receive Date: 20250424
  Receipt Date: 20250424
  Transmission Date: 20250716
  Serious: No
  Sender: ROCHE
  Company Number: US-ROCHE-10000260478

PATIENT
  Age: 52 Year
  Sex: Male
  Weight: 99.79 kg

DRUGS (3)
  1. XOLAIR [Suspect]
     Active Substance: OMALIZUMAB
     Indication: Urticaria
     Dosage: ONGOING, THE PATIENT^S LAST DOSE WAS -MAR-2025
     Route: 058
     Dates: start: 202412
  2. VITAMIN D [Concomitant]
     Active Substance: VITAMIN D NOS
     Indication: Vitamin D decreased
     Dosage: EQUIVALENT TO 125 MCG
     Route: 048
  3. CREATINE [Concomitant]
     Active Substance: CREATINE
     Route: 048

REACTIONS (3)
  - Product dose omission issue [Unknown]
  - Accidental exposure to product [Unknown]
  - No adverse event [Unknown]

NARRATIVE: CASE EVENT DATE: 20250414
